FAERS Safety Report 12356115 (Version 2)
Quarter: 2016Q2

REPORT INFORMATION
  Report Type: Spontaneous
  Country: US (occurrence: US)
  Receive Date: 20160511
  Receipt Date: 20160606
  Transmission Date: 20160815
  Serious: Yes (Other)
  Sender: FDA-Public Use
  Company Number: ALCN2016US003241

PATIENT
  Age: 77 Year
  Sex: Male

DRUGS (3)
  1. AZOPT [Suspect]
     Active Substance: BRINZOLAMIDE
     Indication: EXFOLIATION GLAUCOMA
     Route: 047
  2. TIMOLOL. [Suspect]
     Active Substance: TIMOLOL
     Indication: GLAUCOMA
     Route: 047
  3. BRIMONIDINE [Suspect]
     Active Substance: BRIMONIDINE TARTRATE
     Indication: EXFOLIATION GLAUCOMA
     Route: 047

REACTIONS (5)
  - Conjunctival hyperaemia [Unknown]
  - Intraocular pressure increased [Recovered/Resolved]
  - Corneal oedema [Unknown]
  - Vision blurred [Unknown]
  - Glaucoma [Recovered/Resolved]
